FAERS Safety Report 4884447-5 (Version None)
Quarter: 2006Q1

REPORT INFORMATION
  Report Type: 
  Country: None (occurrence: None)
  Receive Date: 20060117
  Receipt Date: 20060117
  Transmission Date: 20060701
  Serious: No
  Sender: FDA-Public Use
  Company Number: None

PATIENT
  Age: 61 Year
  Sex: Male

DRUGS (1)
  1. APREPITANT [Suspect]

REACTIONS (2)
  - ADVERSE DRUG REACTION [None]
  - HICCUPS [None]
